FAERS Safety Report 9065398 (Version 1)
Quarter: 2013Q1

REPORT INFORMATION
  Report Type: Spontaneous
  Country: SE (occurrence: SE)
  Receive Date: 20130214
  Receipt Date: 20130214
  Transmission Date: 20140127
  Serious: Yes (Other)
  Sender: FDA-Public Use
  Company Number: SE-MUTUAL PHARMACEUTICAL COMPANY, INC.-GBPN20130002

PATIENT
  Sex: Male

DRUGS (1)
  1. GABAPENTIN [Suspect]
     Indication: EPILEPSY
     Route: 065

REACTIONS (1)
  - Renal failure [Unknown]
